FAERS Safety Report 20964235 (Version 7)
Quarter: 2022Q4

REPORT INFORMATION
  Report Type: Spontaneous
  Country: CA (occurrence: CA)
  Receive Date: 20220615
  Receipt Date: 20221116
  Transmission Date: 20230113
  Serious: Yes (Other)
  Sender: FDA-Public Use
  Company Number: CA-PFIZER INC-202200835755

PATIENT
  Age: 55 Year
  Sex: Female

DRUGS (9)
  1. XELJANZ [Suspect]
     Active Substance: TOFACITINIB CITRATE
     Indication: Colitis ulcerative
     Dosage: 10 MG, 2X/DAY X 8 WEEKS, THEN 5MG BID
     Route: 048
     Dates: start: 20220521
  2. XELJANZ [Suspect]
     Active Substance: TOFACITINIB CITRATE
     Dosage: 5 MG, 2X/DAY
     Route: 048
  3. BUDESONIDE [Concomitant]
     Active Substance: BUDESONIDE
     Dosage: UNK, 2X/WEEK
     Dates: start: 20220615
  4. PREDNISONE [Concomitant]
     Active Substance: PREDNISONE
     Dosage: UNK
     Dates: start: 20220621
  5. PREDNISONE [Concomitant]
     Active Substance: PREDNISONE
     Dosage: 5 MG DISCONINUED
     Dates: end: 202209
  6. PREDNISONE [Concomitant]
     Active Substance: PREDNISONE
     Dosage: 30 MG
  7. PREDNISONE [Concomitant]
     Active Substance: PREDNISONE
     Dosage: 10 MG, 1X/DAY
     Route: 065
  8. IRON [Concomitant]
     Active Substance: IRON
     Dosage: 1 DF ONE TABLET AND INCREASE TO THREE TABLETS DAILY
     Dates: start: 20221110
  9. CYANOCOBALAMIN\FOLIC ACID [Concomitant]
     Active Substance: CYANOCOBALAMIN\FOLIC ACID
     Dosage: UNKNOWN

REACTIONS (11)
  - Illness [Unknown]
  - Diarrhoea haemorrhagic [Not Recovered/Not Resolved]
  - Headache [Recovered/Resolved]
  - Dizziness [Recovered/Resolved]
  - Muscle spasms [Not Recovered/Not Resolved]
  - Stress [Not Recovered/Not Resolved]
  - Condition aggravated [Not Recovered/Not Resolved]
  - Eye infection [Unknown]
  - Hordeolum [Unknown]
  - Diarrhoea [Recovered/Resolved]
  - Anaemia [Not Recovered/Not Resolved]

NARRATIVE: CASE EVENT DATE: 20220101
